FAERS Safety Report 21791368 (Version 1)
Quarter: 2022Q4

REPORT INFORMATION
  Report Type: Spontaneous
  Country: JP (occurrence: JP)
  Receive Date: 20221228
  Receipt Date: 20221228
  Transmission Date: 20230112
  Serious: Yes (Other)
  Sender: FDA-Public Use
  Company Number: JP-SA-2022SA492498

PATIENT
  Age: 84 Year
  Sex: Female

DRUGS (1)
  1. KEVZARA [Suspect]
     Active Substance: SARILUMAB
     Indication: Rheumatoid arthritis
     Dosage: 200 MG, QOW
     Route: 058
     Dates: start: 20220825, end: 20221118

REACTIONS (2)
  - Interstitial lung disease [Unknown]
  - KL-6 increased [Not Recovered/Not Resolved]

NARRATIVE: CASE EVENT DATE: 20221101
